FAERS Safety Report 7999759-6 (Version None)
Quarter: 2011Q4

REPORT INFORMATION
  Report Type: 
  Country: None (occurrence: None)
  Receive Date: 20111221
  Receipt Date: 20111209
  Transmission Date: 20120403
  Serious: Yes (Other)
  Sender: FDA-Public Use
  Company Number: US-MYLANLABS-2011S1025699

PATIENT
  Age: 6 Decade
  Sex: Female

DRUGS (2)
  1. CARBOPLATIN [Suspect]
     Indication: ADENOID CYSTIC CARCINOMA
     Dosage: AUC = 5
     Route: 065
  2. DOCETAXEL [Suspect]
     Indication: ADENOID CYSTIC CARCINOMA
     Dosage: 75 MG/M2
     Route: 065

REACTIONS (2)
  - PANCYTOPENIA [None]
  - THROMBOCYTOPENIA [None]
